FAERS Safety Report 7039077-6 (Version None)
Quarter: 2010Q4

REPORT INFORMATION
  Report Type: 
  Country: None (occurrence: None)
  Receive Date: 20101012
  Receipt Date: 20101001
  Transmission Date: 20110411
  Serious: Yes (Hospitalization)
  Sender: FDA-Public Use
  Company Number: JP-NOVOPROD-312709

PATIENT
  Sex: Male
  Weight: 54.7 kg

DRUGS (4)
  1. INSULIN DETEMIR FLEXPEN [Suspect]
     Indication: TYPE 1 DIABETES MELLITUS
     Dosage: 6 IU, QD
     Route: 058
     Dates: start: 20100415, end: 20100806
  2. INSULIN DETEMIR FLEXPEN [Suspect]
     Dosage: 5 U, QD
     Dates: start: 20100816
  3. NOVORAPID FLEXPEN [Suspect]
     Indication: TYPE 1 DIABETES MELLITUS
     Dosage: 22 IU, QD
     Route: 058
     Dates: start: 20100415, end: 20100806
  4. NOVORAPID FLEXPEN [Suspect]
     Dosage: 12 U, QD
     Dates: start: 20100816

REACTIONS (2)
  - DEHYDRATION [None]
  - HYPERGLYCAEMIA [None]
